FAERS Safety Report 14148822 (Version 1)
Quarter: 2017Q4

REPORT INFORMATION
  Report Type: Spontaneous
  Country: US (occurrence: None)
  Receive Date: 20171031
  Receipt Date: 20171031
  Transmission Date: 20180321
  Serious: Yes (Hospitalization)
  Sender: FDA-Public Use
  Company Number: None

PATIENT
  Age: 81 Year
  Sex: Male

DRUGS (1)
  1. PREDNISONE. [Suspect]
     Active Substance: PREDNISONE
     Indication: MYASTHENIA GRAVIS
     Route: 048
     Dates: start: 20170608

REACTIONS (3)
  - Blood ketone body absent [None]
  - Hyperglycaemia [None]
  - Anion gap increased [None]

NARRATIVE: CASE EVENT DATE: 20170721
